FAERS Safety Report 17703136 (Version 4)
Quarter: 2021Q4

REPORT INFORMATION
  Report Type: Spontaneous
  Country: US (occurrence: US)
  Receive Date: 20200424
  Receipt Date: 20211005
  Transmission Date: 20220303
  Serious: Yes (Other)
  Sender: FDA-Public Use
  Company Number: 2020SE53535

PATIENT
  Age: 21701 Day
  Sex: Female
  Weight: 73.5 kg

DRUGS (55)
  1. NEXIUM [Suspect]
     Active Substance: ESOMEPRAZOLE MAGNESIUM
     Indication: Abdominal pain upper
     Route: 048
     Dates: start: 200701, end: 201309
  2. NEXIUM [Suspect]
     Active Substance: ESOMEPRAZOLE MAGNESIUM
     Indication: Gastrooesophageal reflux disease
     Route: 048
     Dates: start: 200701, end: 201309
  3. NEXIUM [Suspect]
     Active Substance: ESOMEPRAZOLE MAGNESIUM
     Indication: Abdominal pain upper
     Dosage: 1-2 DAILY
     Route: 048
     Dates: start: 2006, end: 2012
  4. NEXIUM [Suspect]
     Active Substance: ESOMEPRAZOLE MAGNESIUM
     Indication: Gastrooesophageal reflux disease
     Dosage: 1-2 DAILY
     Route: 048
     Dates: start: 2006, end: 2012
  5. PRILOSEC [Suspect]
     Active Substance: OMEPRAZOLE MAGNESIUM
     Indication: Gastrooesophageal reflux disease
     Route: 048
     Dates: start: 200701, end: 201309
  6. PRILOSEC [Suspect]
     Active Substance: OMEPRAZOLE MAGNESIUM
     Indication: Abdominal pain upper
     Route: 048
     Dates: start: 200701, end: 201309
  7. PRILOSEC [Suspect]
     Active Substance: OMEPRAZOLE MAGNESIUM
     Indication: Gastrooesophageal reflux disease
     Dosage: GENERIC-1-2 DAILY
     Route: 065
     Dates: start: 2006, end: 2012
  8. PRILOSEC [Suspect]
     Active Substance: OMEPRAZOLE MAGNESIUM
     Indication: Abdominal pain upper
     Dosage: GENERIC-1-2 DAILY
     Route: 065
     Dates: start: 2006, end: 2012
  9. PRILOSEC [Suspect]
     Active Substance: OMEPRAZOLE MAGNESIUM
     Indication: Gastrooesophageal reflux disease
     Route: 048
     Dates: start: 2012
  10. PRILOSEC [Suspect]
     Active Substance: OMEPRAZOLE MAGNESIUM
     Indication: Abdominal pain upper
     Route: 048
     Dates: start: 2012
  11. PANTOPRAZOLE [Suspect]
     Active Substance: PANTOPRAZOLE
     Indication: Abdominal pain upper
     Dosage: GENERIC
     Route: 065
     Dates: start: 2017
  12. PANTOPRAZOLE [Suspect]
     Active Substance: PANTOPRAZOLE
     Indication: Gastrooesophageal reflux disease
     Dosage: GENERIC
     Route: 065
     Dates: start: 2017
  13. CELEBREX [Concomitant]
     Active Substance: CELECOXIB
     Indication: Pain
     Route: 065
     Dates: start: 2020
  14. ANAPROX/NAPROSYN [Concomitant]
     Indication: Pain
     Dates: start: 2010
  15. ANAPROX/NAPROSYN [Concomitant]
     Indication: Pyrexia
     Dates: start: 2010
  16. LEVAQUIN [Concomitant]
     Active Substance: LEVOFLOXACIN
     Indication: Infection
     Dates: start: 2010
  17. BACTRIM [Concomitant]
     Active Substance: SULFAMETHOXAZOLE\TRIMETHOPRIM
     Indication: Infection
     Dates: start: 2010
  18. LASIX [Concomitant]
     Active Substance: FUROSEMIDE
     Indication: Oedema
     Dates: start: 2010
  19. ELAVIL [Concomitant]
     Active Substance: AMITRIPTYLINE HYDROCHLORIDE
     Indication: Antidepressant therapy
     Dates: start: 2010
  20. ELAVIL [Concomitant]
     Active Substance: AMITRIPTYLINE HYDROCHLORIDE
     Indication: Neuralgia
     Dates: start: 2010
  21. PEGASYS [Concomitant]
     Active Substance: PEGINTERFERON ALFA-2A
     Indication: Antiviral treatment
     Dates: start: 2010
  22. PEGINTRON [Concomitant]
     Active Substance: PEGINTERFERON ALFA-2B
     Indication: Hepatitis C
     Dates: start: 2010
  23. VITAMIN D [Concomitant]
     Active Substance: VITAMIN D NOS
     Indication: Vitamin D deficiency
     Dates: start: 2012
  24. ZANTAC [Concomitant]
     Active Substance: RANITIDINE HYDROCHLORIDE
  25. MILK OF MAGNESIA [Concomitant]
     Active Substance: MAGNESIUM HYDROXIDE
     Dates: start: 2012, end: 2017
  26. PEPTO-BISMOL [Concomitant]
     Active Substance: BISMUTH SUBSALICYLATE
     Dates: start: 2012, end: 2017
  27. MAALOX ANTACID [Concomitant]
     Active Substance: ALUMINUM HYDROXIDE\DIMETHICONE\MAGNESIUM HYDROXIDE
     Dates: start: 2012, end: 2017
  28. FOSAMAX [Concomitant]
     Active Substance: ALENDRONATE SODIUM
  29. CEFPROZIL [Concomitant]
     Active Substance: CEFPROZIL
  30. TOPAMAX [Concomitant]
     Active Substance: TOPIRAMATE
  31. NEURONTIN [Concomitant]
     Active Substance: GABAPENTIN
  32. NORFLEX [Concomitant]
     Active Substance: ORPHENADRINE CITRATE
  33. AMMONIUM LACTATE [Concomitant]
     Active Substance: AMMONIUM LACTATE
  34. TRAMADOL [Concomitant]
     Active Substance: TRAMADOL
  35. TIZANIDINE [Concomitant]
     Active Substance: TIZANIDINE
  36. CLOTRIMAZOLE [Concomitant]
     Active Substance: CLOTRIMAZOLE
  37. TOPIRAMATE [Concomitant]
     Active Substance: TOPIRAMATE
  38. ALBUTEROL [Concomitant]
     Active Substance: ALBUTEROL
  39. VENTOLIN [Concomitant]
     Active Substance: ALBUTEROL SULFATE
  40. DICYCLOMINE [Concomitant]
     Active Substance: DICYCLOMINE HYDROCHLORIDE
  41. LACTULOSE [Concomitant]
     Active Substance: LACTULOSE
  42. METHYLPREDNISOLONE [Concomitant]
     Active Substance: METHYLPREDNISOLONE
  43. FLUTICASONE [Concomitant]
     Active Substance: FLUTICASONE
  44. MECLIZINE [Concomitant]
     Active Substance: MECLIZINE HYDROCHLORIDE
  45. ALENDRONATE [Concomitant]
     Active Substance: ALENDRONATE SODIUM
  46. CLARITHROMYCIN [Concomitant]
     Active Substance: CLARITHROMYCIN
  47. HYDROCHLOROQUINONE [Concomitant]
  48. METRONIDAZOLE [Concomitant]
     Active Substance: METRONIDAZOLE
  49. MONTELUKAST [Concomitant]
     Active Substance: MONTELUKAST SODIUM
  50. KETOCONAZOLE [Concomitant]
     Active Substance: KETOCONAZOLE
  51. BETAMETHASONE [Concomitant]
     Active Substance: BETAMETHASONE
  52. TRIAMTERENE [Concomitant]
     Active Substance: TRIAMTERENE
  53. BACLOFEN [Concomitant]
     Active Substance: BACLOFEN
  54. TERCONAZOLE [Concomitant]
     Active Substance: TERCONAZOLE
  55. MUCINEX [Concomitant]
     Active Substance: GUAIFENESIN

REACTIONS (3)
  - Chronic kidney disease [Not Recovered/Not Resolved]
  - Acute kidney injury [Unknown]
  - Renal failure [Unknown]

NARRATIVE: CASE EVENT DATE: 20130521
